FAERS Safety Report 10205612 (Version 2)
Quarter: 2014Q3

REPORT INFORMATION
  Report Type: Report from Study
  Country: BR (occurrence: BR)
  Receive Date: 20140529
  Receipt Date: 20140826
  Transmission Date: 20150326
  Serious: Yes (Hospitalization, Other)
  Sender: FDA-Public Use
  Company Number: PHHY2014BR065861

PATIENT
  Sex: Male
  Weight: 75 kg

DRUGS (6)
  1. AZITHROMYCIN [Concomitant]
     Active Substance: AZITHROMYCIN ANHYDROUS
     Indication: CYSTIC FIBROSIS
     Dosage: UNK UKN, EVERY EACH OTHER DAY
  2. CREON [Concomitant]
     Active Substance: PANCRELIPASE AMYLASE\PANCRELIPASE LIPASE\PANCRELIPASE PROTEASE
     Dosage: 2 DF, QD
  3. TOBI [Suspect]
     Active Substance: TOBRAMYCIN
     Dosage: UNK UKN, UNK
  4. DORNASE ALFA [Concomitant]
     Active Substance: DORNASE ALFA
     Indication: CYSTIC FIBROSIS
     Dosage: UNK UKN, QD
     Route: 055
  5. ZOTEON [Suspect]
     Active Substance: TOBRAMYCIN
     Indication: CYSTIC FIBROSIS
     Dosage: 8 DF, DAILY
     Route: 055
     Dates: start: 20140401
  6. CIPRO//CIPROFLOXACIN [Concomitant]
     Active Substance: CIPROFLOXACIN
     Indication: CYSTIC FIBROSIS
     Dosage: UNK, Q12H
     Dates: end: 20140512

REACTIONS (4)
  - Spirometry abnormal [Not Recovered/Not Resolved]
  - Bronchial secretion retention [Not Recovered/Not Resolved]
  - Deafness [Not Recovered/Not Resolved]
  - Dyspnoea [Not Recovered/Not Resolved]
